FAERS Safety Report 22246566 (Version 1)
Quarter: 2023Q2

REPORT INFORMATION
  Report Type: Spontaneous
  Country: US (occurrence: US)
  Receive Date: 20230424
  Receipt Date: 20230424
  Transmission Date: 20230722
  Serious: Yes (Other)
  Sender: FDA-Public Use
  Company Number: US-ANIPHARMA-2023-US-010306

PATIENT
  Age: 62 Year
  Sex: Female

DRUGS (8)
  1. VANCOMYCIN HYDROCHLORIDE [Suspect]
     Active Substance: VANCOMYCIN HYDROCHLORIDE
     Indication: Clostridium difficile infection
     Dosage: 250MG 4 TIMES DAILY (24-FEB-2023 TO 06-MAR-2023); 125MG 4X DAILY STARTING 07-APR-2023 (ONGOING)
     Route: 048
     Dates: start: 20230224
  2. BENICAR [Concomitant]
     Active Substance: OLMESARTAN MEDOXOMIL
     Dosage: ONCE DAILY
  3. SUMATRIPTAN [Concomitant]
     Active Substance: SUMATRIPTAN
     Dosage: ONCE MONTHLY
  4. ALBUTEROL [Concomitant]
     Active Substance: ALBUTEROL
     Dosage: AS NEEDED
  5. CYCLOBENZAPRINE [Concomitant]
     Active Substance: CYCLOBENZAPRINE
     Dosage: AS NEEDED
  6. VITAMIN B12 [Concomitant]
     Active Substance: CYANOCOBALAMIN
  7. VITAMIN B2 [Concomitant]
     Active Substance: RIBOFLAVIN
  8. VITAMIN D3 [Concomitant]
     Active Substance: CHOLECALCIFEROL

REACTIONS (6)
  - Drug ineffective [Not Recovered/Not Resolved]
  - Headache [Recovered/Resolved]
  - Fatigue [Recovered/Resolved]
  - Dizziness [Recovered/Resolved]
  - Dehydration [Unknown]
  - Haematuria [Unknown]

NARRATIVE: CASE EVENT DATE: 20230224
